FAERS Safety Report 6031508-3 (Version None)
Quarter: 2009Q1

REPORT INFORMATION
  Report Type: 
  Country: None (occurrence: None)
  Receive Date: 20090108
  Receipt Date: 20081219
  Transmission Date: 20090719
  Serious: Yes (Hospitalization, Other)
  Sender: FDA-Public Use
  Company Number: JP-PFIZER INC-2008156424

PATIENT

DRUGS (4)
  1. AMLODIPINE BESILATE [Suspect]
     Indication: HYPERTENSION
     Dosage: UNK
  2. AMLODIPINE BESILATE [Suspect]
     Indication: HYPERLIPIDAEMIA
  3. CARDENALIN [Suspect]
     Dosage: UNK
  4. BLOPRESS [Suspect]
     Dosage: UNK

REACTIONS (2)
  - OVERDOSE [None]
  - RENAL FAILURE ACUTE [None]
